FAERS Safety Report 25048585 (Version 1)
Quarter: 2025Q1

REPORT INFORMATION
  Report Type: Spontaneous
  Country: GB (occurrence: GB)
  Receive Date: 20250307
  Receipt Date: 20250307
  Transmission Date: 20250408
  Serious: Yes (Other)
  Sender: JOHNSON AND JOHNSON
  Company Number: GB-MHRA-TPP37023140C8513981YC1741110661098

PATIENT
  Age: 57 Year
  Sex: Male
  Weight: 78 kg

DRUGS (12)
  1. INVOKANA [Suspect]
     Active Substance: CANAGLIFLOZIN
     Indication: Ill-defined disorder
     Dosage: ONE TO BE TAKEN DAILY PREFERABLY BEFORE BREAKFAST
     Route: 048
     Dates: start: 20241125, end: 20250206
  2. AMOXICILLIN\CLAVULANATE POTASSIUM [Concomitant]
     Active Substance: AMOXICILLIN\CLAVULANATE POTASSIUM
     Indication: Ill-defined disorder
     Dates: start: 20250128, end: 20250204
  3. PRONTOSAN [POLIHEXANIDE] [Concomitant]
     Indication: Ill-defined disorder
     Dates: start: 20250207
  4. ALOGLIPTIN [Concomitant]
     Active Substance: ALOGLIPTIN
     Indication: Ill-defined disorder
     Dates: start: 20241125
  5. CO-DYDRAMOL [Concomitant]
     Active Substance: ACETAMINOPHEN\DIHYDROCODEINE
     Indication: Ill-defined disorder
     Dates: start: 20241125
  6. DULOXETINE [Concomitant]
     Active Substance: DULOXETINE
     Indication: Ill-defined disorder
     Dates: start: 20241125
  7. GABAPENTIN [Concomitant]
     Active Substance: GABAPENTIN
     Indication: Ill-defined disorder
     Dates: start: 20241125
  8. GLIMEPIRIDE [Concomitant]
     Active Substance: GLIMEPIRIDE
     Indication: Ill-defined disorder
     Dates: start: 20241125
  9. METFORMIN [Concomitant]
     Active Substance: METFORMIN HYDROCHLORIDE
     Indication: Ill-defined disorder
     Dates: start: 20241125
  10. SULFASALAZINE [Concomitant]
     Active Substance: SULFASALAZINE
     Indication: Ill-defined disorder
     Dates: start: 20241125, end: 20250217
  11. SIMVASTATIN [Concomitant]
     Active Substance: SIMVASTATIN
     Indication: Ill-defined disorder
     Dates: start: 20241125
  12. SULFASALAZINE [Concomitant]
     Active Substance: SULFASALAZINE
     Indication: Ill-defined disorder
     Dates: start: 20250217

REACTIONS (1)
  - Fournier^s gangrene [Recovering/Resolving]
